FAERS Safety Report 4347501-2 (Version None)
Quarter: 2004Q2

REPORT INFORMATION
  Report Type: 
  Country: None (occurrence: None)
  Receive Date: 20040421
  Receipt Date: 20040309
  Transmission Date: 20050107
  Serious: Yes (Other)
  Sender: FDA-Public Use
  Company Number: 2004016472

PATIENT
  Age: 70 Year
  Sex: Female
  Weight: 53.978 kg

DRUGS (12)
  1. RELPAX [Suspect]
     Indication: MIGRAINE
     Dosage: 40 MG
     Dates: start: 20040101
  2. SUMATRIPTAN SUCCINATE [Suspect]
     Indication: MIGRAINE
  3. ROFECOXIB [Suspect]
     Indication: ILL-DEFINED DISORDER
  4. LEVOTHYROXINE SODIUM [Concomitant]
  5. PROPRANOLOL HCL [Concomitant]
  6. RALOXIFENE HCL [Concomitant]
  7. CALCITONIN, SALMON (CALCITONIN, SALMON) [Concomitant]
  8. ATORVASTATIN (ATORVASTATIN) [Concomitant]
  9. PROPACET 100 [Concomitant]
  10. DIAZEPAM [Concomitant]
  11. VALDECOXIB [Concomitant]
  12. TEMAZEPAM [Concomitant]

REACTIONS (11)
  - ABDOMINAL PAIN UPPER [None]
  - AMNESIA [None]
  - ARTHRITIS [None]
  - BACK PAIN [None]
  - DRUG INEFFECTIVE [None]
  - FEELING ABNORMAL [None]
  - HYPOAESTHESIA [None]
  - MIGRAINE [None]
  - MUSCLE TIGHTNESS [None]
  - NECK PAIN [None]
  - SOMNOLENCE [None]
